FAERS Safety Report 12648885 (Version 1)
Quarter: 2016Q3

REPORT INFORMATION
  Report Type: Spontaneous
  Country: US (occurrence: US)
  Receive Date: 20160812
  Receipt Date: 20160812
  Transmission Date: 20161109
  Serious: No
  Sender: FDA-Public Use
  Company Number: US-BRAINTREE LABORATORIES-150269

PATIENT
  Age: 81 Year
  Sex: Female
  Weight: 63.5 kg

DRUGS (1)
  1. GOLYTELY [Suspect]
     Active Substance: POLYETHYLENE GLYCOL 3350\POTASSIUM CHLORIDE\SODIUM BICARBONATE\SODIUM CHLORIDE\SODIUM SULFATE ANHYDROUS
     Indication: COLONOSCOPY
     Dosage: 4L
     Route: 048
     Dates: start: 20150630, end: 20150701

REACTIONS (7)
  - Back pain [None]
  - Abdominal discomfort [None]
  - Nausea [None]
  - Blood pressure fluctuation [None]
  - Musculoskeletal chest pain [None]
  - Dyspepsia [None]
  - Wrong technique in product usage process [None]

NARRATIVE: CASE EVENT DATE: 20150701
